FAERS Safety Report 23425323 (Version 2)
Quarter: 2024Q1

REPORT INFORMATION
  Report Type: Spontaneous
  Country: CZ (occurrence: CZ)
  Receive Date: 20240122
  Receipt Date: 20240202
  Transmission Date: 20240410
  Serious: No
  Sender: FDA-Public Use
  Company Number: CZ-SAMSUNG BIOEPIS-SB-2023-31988

PATIENT
  Age: 3 Year
  Sex: Male

DRUGS (1)
  1. REMICADE [Suspect]
     Active Substance: INFLIXIMAB
     Indication: Inflammatory bowel disease
     Dosage: UNKNOWN
     Route: 041

REACTIONS (2)
  - Drug ineffective [Unknown]
  - Off label use [Unknown]
